FAERS Safety Report 14200780 (Version 1)
Quarter: 2017Q4

REPORT INFORMATION
  Report Type: Spontaneous
  Country: US (occurrence: US)
  Receive Date: 20171117
  Receipt Date: 20171117
  Transmission Date: 20180321
  Serious: Yes (Other)
  Sender: FDA-Public Use
  Company Number: US-NOVOPROD-543499

PATIENT
  Age: 86 Year
  Sex: Male
  Weight: 81.63 kg

DRUGS (4)
  1. NOVOLOG [Suspect]
     Active Substance: INSULIN ASPART
     Indication: TYPE 1 DIABETES MELLITUS
     Dosage: 6-7 UNITS TID DEPENDING ON READING, WITH MEALS
     Route: 058
     Dates: end: 2016
  2. NOVOLOG [Suspect]
     Active Substance: INSULIN ASPART
     Dosage: 6-7 UNITS TID DEPENDING ON READING, WITH MEALS
     Route: 058
     Dates: start: 2016
  3. NOVOLOG [Suspect]
     Active Substance: INSULIN ASPART
     Dosage: 18 U, SINGLE DOSE AT NIGHT PRIOR TO GOING TO BED
     Dates: start: 2016, end: 2016
  4. LANTUS [Suspect]
     Active Substance: INSULIN GLARGINE
     Indication: TYPE 1 DIABETES MELLITUS
     Dosage: 18 UNITS QD AT NIGHT
     Route: 058

REACTIONS (2)
  - Wrong drug administered [Recovered/Resolved]
  - Blood glucose decreased [Recovered/Resolved]

NARRATIVE: CASE EVENT DATE: 2016
